FAERS Safety Report 23496192 (Version 1)
Quarter: 2024Q1

REPORT INFORMATION
  Report Type: Spontaneous
  Country: US (occurrence: None)
  Receive Date: 20240207
  Receipt Date: 20240207
  Transmission Date: 20240410
  Serious: No
  Sender: FDA-Public Use
  Company Number: US-ROCHE-3268824

PATIENT
  Sex: Female

DRUGS (2)
  1. XOLAIR [Suspect]
     Active Substance: OMALIZUMAB
     Indication: Idiopathic urticaria
     Route: 058
     Dates: start: 20221122
  2. XOLAIR [Suspect]
     Active Substance: OMALIZUMAB

REACTIONS (8)
  - Chest discomfort [Unknown]
  - Gastrointestinal disorder [Unknown]
  - Neck pain [Unknown]
  - Anxiety [Unknown]
  - Abdominal pain upper [Unknown]
  - Arthralgia [Unknown]
  - Spinal pain [Unknown]
  - Myalgia [Unknown]
